FAERS Safety Report 7321274-3 (Version None)
Quarter: 2011Q1

REPORT INFORMATION
  Report Type: 
  Country: None (occurrence: None)
  Receive Date: 20110228
  Receipt Date: 20100217
  Transmission Date: 20110831
  Serious: Yes (Other)
  Sender: FDA-Public Use
  Company Number: US-PFIZER INC-2009224794

PATIENT
  Sex: Male
  Weight: 81.633 kg

DRUGS (5)
  1. LOVASTATIN [Concomitant]
     Dosage: 20 MG, UNK
  2. ALEVE [Concomitant]
     Dosage: UNK
  3. GEODON [Suspect]
     Indication: DEPRESSION
     Dosage: 20 MG, 1X/DAY
     Dates: start: 20090512
  4. MULTIVITAMIN [Concomitant]
     Dosage: UNK
  5. ACETYLSALICYLIC ACID [Concomitant]
     Dosage: UNK

REACTIONS (3)
  - MANIA [None]
  - DEPRESSION [None]
  - DRUG INEFFECTIVE [None]
